FAERS Safety Report 5090219-1 (Version None)
Quarter: 2006Q3

REPORT INFORMATION
  Report Type: 
  Country: None (occurrence: None)
  Receive Date: 20060828
  Receipt Date: 20060822
  Transmission Date: 20061208
  Serious: Yes (Other)
  Sender: FDA-Public Use
  Company Number: PHNU2006DE02869

PATIENT
  Sex: Female
  Weight: 60 kg

DRUGS (3)
  1. TRILEPTAL [Suspect]
     Indication: EPILEPSY
     Dosage: 300 MG, BID
     Route: 048
  2. TRILEPTAL [Suspect]
     Dosage: 600 MG, BID
  3. BENALAPRIL [Concomitant]
     Indication: HYPERTENSION
     Route: 048

REACTIONS (13)
  - ANAEMIA [None]
  - CARDIOVASCULAR DISORDER [None]
  - HEADACHE [None]
  - HYPONATRAEMIA [None]
  - HYPOTENSION [None]
  - NAUSEA [None]
  - PERFORMANCE STATUS DECREASED [None]
  - TACHYCARDIA [None]
  - TUNNEL VISION [None]
  - VISION BLURRED [None]
  - VISUAL ACUITY REDUCED [None]
  - VISUAL DISTURBANCE [None]
  - VOMITING [None]
